FAERS Safety Report 5531870-1 (Version None)
Quarter: 2007Q4

REPORT INFORMATION
  Report Type: 
  Country: None (occurrence: None)
  Receive Date: 20071203
  Receipt Date: 20071126
  Transmission Date: 20080405
  Serious: Yes (Hospitalization)
  Sender: FDA-Public Use
  Company Number: FR-ROCHE-524790

PATIENT
  Age: 70 Year
  Sex: Female
  Weight: 54.8 kg

DRUGS (3)
  1. BONIVA [Suspect]
     Indication: OSTEOPOROSIS
     Route: 048
     Dates: start: 20070611
  2. ACETAMINOPHEN [Concomitant]
     Route: 048
  3. RIVOTRIL [Concomitant]
     Route: 048

REACTIONS (6)
  - FALL [None]
  - FRACTURE [None]
  - LOSS OF CONSCIOUSNESS [None]
  - NAUSEA [None]
  - VERTIGO [None]
  - VISUAL DISTURBANCE [None]
